FAERS Safety Report 7121591-6 (Version None)
Quarter: 2010Q4

REPORT INFORMATION
  Report Type: 
  Country: None (occurrence: None)
  Receive Date: 20101124
  Receipt Date: 20101111
  Transmission Date: 20110411
  Serious: Yes (Other)
  Sender: FDA-Public Use
  Company Number: US-ELI_LILLY_AND_COMPANY-US201001004395

PATIENT
  Sex: Female

DRUGS (13)
  1. FORTEO [Suspect]
     Indication: OSTEOPOROSIS
     Dosage: 20 UG, DAILY (1/D)
  2. FORTEO [Suspect]
     Dosage: 20 UG, DAILY (1/D)
  3. FORTEO [Suspect]
     Dosage: 20 UG, DAILY (1/D)
  4. FORTEO [Suspect]
     Dosage: 20 UG, DAILY (1/D)
  5. FORTEO [Suspect]
     Dosage: 20 UG, DAILY (1/D)
  6. DIOVAN [Concomitant]
     Indication: BLOOD PRESSURE
  7. METOPROLOL [Concomitant]
     Indication: BLOOD PRESSURE ABNORMAL
  8. LISINOPRIL [Concomitant]
     Indication: BLOOD PRESSURE ABNORMAL
  9. CARVEDILOL [Concomitant]
     Indication: BLOOD PRESSURE ABNORMAL
  10. CYMBALTA [Concomitant]
  11. MELOXICAM [Concomitant]
  12. EXELON [Concomitant]
  13. DARVOCET [Concomitant]

REACTIONS (18)
  - AMNESIA [None]
  - ASTHENIA [None]
  - CONTUSION [None]
  - DEMENTIA ALZHEIMER'S TYPE [None]
  - DEPRESSED LEVEL OF CONSCIOUSNESS [None]
  - DISORIENTATION [None]
  - DIZZINESS [None]
  - DRUG DOSE OMISSION [None]
  - FALL [None]
  - GAIT DISTURBANCE [None]
  - HEAD INJURY [None]
  - HYPOTENSION [None]
  - LETHARGY [None]
  - NERVOUSNESS [None]
  - SCAR [None]
  - SKIN INJURY [None]
  - SKIN LACERATION [None]
  - SPINAL DEFORMITY [None]
